FAERS Safety Report 19356792 (Version 1)
Quarter: 2021Q2

REPORT INFORMATION
  Report Type: Spontaneous
  Country: US (occurrence: US)
  Receive Date: 20210602
  Receipt Date: 20210602
  Transmission Date: 20210717
  Serious: No
  Sender: FDA-Public Use
  Company Number: None

PATIENT
  Age: 71 Year
  Sex: Male
  Weight: 123 kg

DRUGS (1)
  1. EMPAGLIFLOZIN (EMPAGLIFLOZIN 25MG TAB) [Suspect]
     Active Substance: EMPAGLIFLOZIN
     Indication: DIABETES MELLITUS
     Route: 048
     Dates: start: 20200902, end: 20201007

REACTIONS (6)
  - Diarrhoea [None]
  - Constipation [None]
  - Fungal infection [None]
  - Dizziness [None]
  - Pollakiuria [None]
  - Abdominal discomfort [None]

NARRATIVE: CASE EVENT DATE: 20201007
